FAERS Safety Report 4926967-0 (Version None)
Quarter: 2006Q1

REPORT INFORMATION
  Report Type: 
  Country: None (occurrence: None)
  Receive Date: 20060228
  Receipt Date: 20050923
  Transmission Date: 20060701
  Serious: Yes (Life-Threatening, Hospitalization, Other)
  Sender: FDA-Public Use
  Company Number: US-GLAXOSMITHKLINE-A0575716A

PATIENT
  Age: 11 Year
  Sex: Male

DRUGS (2)
  1. LAMICTAL [Suspect]
     Route: 048
     Dates: start: 20050801, end: 20050827
  2. CONCERTA [Concomitant]

REACTIONS (2)
  - SKIN EXFOLIATION [None]
  - STEVENS-JOHNSON SYNDROME [None]
